FAERS Safety Report 11658148 (Version 1)
Quarter: 2015Q4

REPORT INFORMATION
  Report Type: Spontaneous
  Country: CA (occurrence: CA)
  Receive Date: 20151024
  Receipt Date: 20151024
  Transmission Date: 20160304
  Serious: Yes (Other)
  Sender: FDA-Public Use
  Company Number: CA-UCBSA-013365

PATIENT
  Age: 33 Year
  Sex: Female
  Weight: 95 kg

DRUGS (3)
  1. MTX [Concomitant]
     Active Substance: METHOTREXATE SODIUM
     Indication: RHEUMATOID ARTHRITIS
     Dosage: 20 MG, WEEKLY (QW)
     Route: 048
     Dates: start: 2005
  2. CIMZIA [Suspect]
     Active Substance: CERTOLIZUMAB PEGOL
     Indication: RHEUMATOID ARTHRITIS
     Dosage: 200 MG, EV 2 WEEKS(QOW)
     Route: 058
     Dates: start: 20081208, end: 20100420
  3. ADRENALIN [Suspect]
     Active Substance: EPINEPHRINE
     Dosage: UNKNOWN DOSE

REACTIONS (4)
  - Cerebrovascular accident [Recovering/Resolving]
  - Drug hypersensitivity [Recovering/Resolving]
  - Myocardial infarction [Recovering/Resolving]
  - Condition aggravated [Recovering/Resolving]

NARRATIVE: CASE EVENT DATE: 20100415
